FAERS Safety Report 24916445 (Version 2)
Quarter: 2025Q1

REPORT INFORMATION
  Report Type: Spontaneous
  Country: US (occurrence: US)
  Receive Date: 20250203
  Receipt Date: 20250207
  Transmission Date: 20250409
  Serious: Yes (Hospitalization, Disabling)
  Sender: ROCHE
  Company Number: US-ROCHE-10000190847

PATIENT
  Age: 67 Year
  Sex: Female

DRUGS (2)
  1. ACTEMRA [Suspect]
     Active Substance: TOCILIZUMAB
     Indication: Product used for unknown indication
     Route: 058
  2. CELLCEPT [Suspect]
     Active Substance: MYCOPHENOLATE MOFETIL
     Indication: Product used for unknown indication
     Route: 048
     Dates: start: 20250107, end: 20250116

REACTIONS (3)
  - Pain in jaw [Recovering/Resolving]
  - Stomatitis [Unknown]
  - Cellulitis [Unknown]

NARRATIVE: CASE EVENT DATE: 20250116
